FAERS Safety Report 8482462-6 (Version None)
Quarter: 2012Q3

REPORT INFORMATION
  Report Type: 
  Country: None (occurrence: None)
  Receive Date: 20120702
  Receipt Date: 20120626
  Transmission Date: 20120928
  Serious: Yes (Death, Life-Threatening, Hospitalization)
  Sender: FDA-Public Use
  Company Number: GR-GLAXOSMITHKLINE-B0811505A

PATIENT
  Sex: Female
  Weight: 85 kg

DRUGS (11)
  1. DEXAMETHASONE [Concomitant]
     Route: 042
     Dates: start: 20091228, end: 20100118
  2. CELIPROLOL [Concomitant]
     Route: 048
     Dates: start: 20000615, end: 20100131
  3. LAPATINIB [Suspect]
     Indication: GLIOMA
     Dosage: 1250MG PER DAY
     Route: 048
     Dates: start: 20091228, end: 20100124
  4. TEMODAL [Suspect]
     Indication: GLIOMA
     Dosage: 365MG PER DAY
     Route: 048
     Dates: start: 20091228, end: 20100122
  5. ONDANSETRON HYDROCHLORIDE [Concomitant]
     Route: 042
     Dates: start: 20091228, end: 20100118
  6. RANITIDINE HCL [Concomitant]
     Route: 042
     Dates: start: 20091228, end: 20100118
  7. ENOXAPARIN [Concomitant]
     Indication: THROMBOSIS
     Route: 048
     Dates: start: 20091217, end: 20100131
  8. RAMIPRIL [Concomitant]
     Indication: HYPERTENSION
     Route: 048
     Dates: start: 20000615, end: 20100131
  9. KEPPRA [Concomitant]
     Indication: EPILEPSY
     Route: 048
     Dates: start: 20090731, end: 20100131
  10. DEXAMETHASONE [Concomitant]
     Indication: OEDEMA
     Route: 048
     Dates: start: 20090731, end: 20100131
  11. DIMETINDENE [Concomitant]
     Route: 042
     Dates: start: 20091228, end: 20100118

REACTIONS (6)
  - NEUTROPENIC INFECTION [None]
  - NEUTROPENIA [None]
  - PLATELET COUNT DECREASED [None]
  - ANAEMIA [None]
  - SEPTIC SHOCK [None]
  - CARDIOPULMONARY FAILURE [None]
